FAERS Safety Report 12265896 (Version 2)
Quarter: 2016Q2

REPORT INFORMATION
  Report Type: Report from Study
  Country: US (occurrence: US)
  Receive Date: 20160413
  Receipt Date: 20160519
  Transmission Date: 20160815
  Serious: Yes (Hospitalization, Other)
  Sender: FDA-Public Use
  Company Number: US-ABBVIE-16K-163-1598336-00

PATIENT
  Age: 60 Year
  Sex: Female

DRUGS (5)
  1. LEFLUNOMIDE. [Concomitant]
     Active Substance: LEFLUNOMIDE
     Indication: PRODUCT USED FOR UNKNOWN INDICATION
  2. HUMIRA [Suspect]
     Active Substance: ADALIMUMAB
     Indication: RHEUMATOID ARTHRITIS
     Dosage: ONE TO TWO MONTHS
     Route: 058
     Dates: start: 201510, end: 201511
  3. TYLENOL [Concomitant]
     Active Substance: ACETAMINOPHEN
     Indication: PRODUCT USED FOR UNKNOWN INDICATION
  4. BUPRENORPHINE. [Concomitant]
     Active Substance: BUPRENORPHINE
     Indication: PRODUCT USED FOR UNKNOWN INDICATION
  5. HUMIRA [Suspect]
     Active Substance: ADALIMUMAB
     Dosage: ONE TO TWO MONTHS
     Route: 058
     Dates: start: 201602

REACTIONS (8)
  - Drug dose omission [Unknown]
  - Joint dislocation [Recovered/Resolved]
  - Rheumatoid arthritis [Unknown]
  - Device issue [Recovered/Resolved]
  - Local swelling [Unknown]
  - Osteoporosis [Not Recovered/Not Resolved]
  - Groin pain [Unknown]
  - Erythema [Unknown]

NARRATIVE: CASE EVENT DATE: 201511
